FAERS Safety Report 8327255-5 (Version None)
Quarter: 2012Q2

REPORT INFORMATION
  Report Type: 
  Country: None (occurrence: None)
  Receive Date: 20120502
  Receipt Date: 20120426
  Transmission Date: 20120825
  Serious: Yes (Other)
  Sender: FDA-Public Use
  Company Number: GR-AMGEN-GRCSP2012014786

PATIENT
  Age: 73 Year
  Sex: Female
  Weight: 60 kg

DRUGS (7)
  1. LIPITOR [Concomitant]
     Dosage: 10 MG, BID
  2. CALCIUM CARBONATE [Concomitant]
  3. PROLIA [Suspect]
     Indication: OSTEOPOROSIS
     Dosage: UNK UNK, Q6MO
     Route: 058
     Dates: start: 20111005, end: 20120405
  4. T4 [Concomitant]
  5. SALOSPIR [Concomitant]
     Dosage: 80 MG, BID
  6. LATANOPROST [Concomitant]
     Dosage: UNK UNK, BID
     Route: 047
  7. FLUVAX [Concomitant]
     Dosage: UNK UNK, ONE TIME DOSE
     Route: 058
     Dates: start: 20110930

REACTIONS (5)
  - VISION BLURRED [None]
  - RHINITIS [None]
  - COUGH [None]
  - MYALGIA [None]
  - ECZEMA [None]
